FAERS Safety Report 14988890 (Version 1)
Quarter: 2018Q2

REPORT INFORMATION
  Report Type: Spontaneous
  Country: AU (occurrence: AU)
  Receive Date: 20180608
  Receipt Date: 20180608
  Transmission Date: 20180711
  Serious: Yes (Other)
  Sender: FDA-Public Use
  Company Number: AU-LPDUSPRD-20180982

PATIENT
  Age: 41 Year
  Sex: Female

DRUGS (2)
  1. VENOFER [Suspect]
     Active Substance: IRON SUCROSE
     Dosage: UNKNOWN
     Route: 041
     Dates: start: 201805
  2. FERINJECT [Suspect]
     Active Substance: FERRIC CARBOXYMALTOSE
     Dosage: UNKNOWN
     Route: 041
     Dates: start: 201805

REACTIONS (9)
  - Pyrexia [Recovered/Resolved]
  - Menorrhagia [Unknown]
  - Nasopharyngitis [Recovered/Resolved]
  - Drug ineffective [Unknown]
  - Lethargy [Unknown]
  - Dizziness [Unknown]
  - Fatigue [None]
  - Malaise [Recovered/Resolved]
  - Viral upper respiratory tract infection [None]

NARRATIVE: CASE EVENT DATE: 201805
